FAERS Safety Report 17713667 (Version 2)
Quarter: 2020Q2

REPORT INFORMATION
  Report Type: Spontaneous
  Country: US (occurrence: US)
  Receive Date: 20200427
  Receipt Date: 20200515
  Transmission Date: 20200714
  Serious: Yes (Other)
  Sender: FDA-Public Use
  Company Number: US-PFIZER INC-2020164889

PATIENT
  Age: 16 Year
  Sex: Male
  Weight: 100.2 kg

DRUGS (3)
  1. ISOPROTERENOL [ISOPRENALINE] [Concomitant]
     Active Substance: ISOPROTERENOL
     Dosage: UNK
     Dates: start: 201904
  2. PROPOFOL. [Suspect]
     Active Substance: PROPOFOL
     Indication: ANAESTHESIA
     Dosage: UNK (TOTAL DOSE OF BOLUS PLUS INFUSION: 3215 MG)
     Route: 040
     Dates: start: 20190425, end: 20190425
  3. HEPARIN [Concomitant]
     Active Substance: HEPARIN SODIUM
     Indication: COAGULOPATHY
     Dosage: UNK (TOTAL DOSE: 90 UNITS/KG)
     Route: 042
     Dates: start: 20190425

REACTIONS (1)
  - Priapism [Recovered/Resolved]

NARRATIVE: CASE EVENT DATE: 20190425
